FAERS Safety Report 4289557-1 (Version None)
Quarter: 2004Q1

REPORT INFORMATION
  Report Type: 
  Country: None (occurrence: None)
  Receive Date: 20040209
  Receipt Date: 20040209
  Transmission Date: 20041129
  Serious: Yes (Disabling, Other)
  Sender: FDA-Public Use
  Company Number: None

PATIENT
  Sex: Female
  Weight: 104.3273 kg

DRUGS (1)
  1. ZICAM SPRAY PUMP [Suspect]
     Indication: NASOPHARYNGITIS
     Dosage: PER LABEL
     Dates: start: 20011101, end: 20011201

REACTIONS (4)
  - AGEUSIA [None]
  - ANOSMIA [None]
  - HEAD INJURY [None]
  - ROAD TRAFFIC ACCIDENT [None]
